FAERS Safety Report 8854608 (Version 1)
Quarter: 2012Q4

REPORT INFORMATION
  Report Type: 
  Country: FR (occurrence: FR)
  Receive Date: 20121023
  Receipt Date: 20121023
  Transmission Date: 20130627
  Serious: Yes (Hospitalization)
  Sender: FDA-Public Use
  Company Number: FR-PFIZER INC-2012259955

PATIENT
  Age: 68 Year
  Sex: Female

DRUGS (8)
  1. GEMFIBROZIL [Suspect]
     Indication: HYPERCHOLESTEROLAEMIA
     Dosage: 450 mg, 2x/day
     Route: 048
     Dates: start: 201103, end: 20120808
  2. SIMVASTATIN [Interacting]
     Indication: HYPERCHOLESTEROLAEMIA
     Dosage: 40 mg, daily
     Route: 048
     Dates: start: 201103, end: 20120808
  3. INEGY [Interacting]
     Indication: HYPERCHOLESTEROLAEMIA
     Dosage: 1 DF, 1x/day
     Route: 048
     Dates: start: 201105, end: 20120808
  4. FUROSEMIDE [Concomitant]
     Dosage: 20 mg, daily
  5. CLOPIDOGREL WINTHROP [Concomitant]
     Dosage: 75 mg, daily
  6. FIXICAL VITAMINE D3 [Concomitant]
     Dosage: 1 DF, daily
  7. PENTOXIFYLLINE [Concomitant]
     Dosage: UNK, 2x/day
  8. SEVIKAR [Concomitant]
     Dosage: UNK, daily

REACTIONS (2)
  - Drug interaction [Recovered/Resolved]
  - Rhabdomyolysis [Recovered/Resolved]
